FAERS Safety Report 9083676 (Version 1)
Quarter: 2013Q1

REPORT INFORMATION
  Report Type: Report from Study
  Country: US (occurrence: US)
  Receive Date: 20130130
  Receipt Date: 20130130
  Transmission Date: 20140127
  Serious: Yes (Other)
  Sender: FDA-Public Use
  Company Number: US-ABBOTT-12P-163-0981873-00

PATIENT
  Sex: Female
  Weight: 48.58 kg

DRUGS (3)
  1. HUMIRA [Suspect]
     Indication: RHEUMATOID ARTHRITIS
     Dates: start: 2004, end: 2012
  2. HUMIRA [Suspect]
     Dates: start: 201206
  3. ASPIRIN [Concomitant]
     Indication: RHEUMATOID ARTHRITIS

REACTIONS (5)
  - Appendicitis [Recovered/Resolved]
  - Abdominal discomfort [Recovered/Resolved]
  - Nasopharyngitis [Recovered/Resolved]
  - Oral fungal infection [Recovered/Resolved]
  - Oral fungal infection [Not Recovered/Not Resolved]
